FAERS Safety Report 9098771 (Version 1)
Quarter: 2013Q1

REPORT INFORMATION
  Report Type: Spontaneous
  Country: IT (occurrence: IT)
  Receive Date: 20130214
  Receipt Date: 20130214
  Transmission Date: 20140127
  Serious: Yes (Other)
  Sender: FDA-Public Use
  Company Number: PHHY2013IT013339

PATIENT
  Sex: Female

DRUGS (1)
  1. AMOXICILLIN-CLAVULANIC ACID [Suspect]
     Indication: PYREXIA
     Dosage: 50 MG/KG, DAILY
     Route: 048
     Dates: start: 20130204, end: 20130205

REACTIONS (1)
  - Agitation [Recovering/Resolving]
